FAERS Safety Report 13462531 (Version 1)
Quarter: 2017Q2

REPORT INFORMATION
  Report Type: Spontaneous
  Country: JP (occurrence: JP)
  Receive Date: 20170420
  Receipt Date: 20170420
  Transmission Date: 20170830
  Serious: Yes (Other)
  Sender: FDA-Public Use
  Company Number: JP-CELGENEUS-JPN-20170405797

PATIENT

DRUGS (1)
  1. POMALYST [Suspect]
     Active Substance: POMALIDOMIDE
     Indication: PRODUCT USED FOR UNKNOWN INDICATION
     Route: 048

REACTIONS (12)
  - Vomiting [Unknown]
  - Liver disorder [Unknown]
  - Platelet count decreased [Unknown]
  - Cellulitis [Unknown]
  - Adverse event [Unknown]
  - Infection [Unknown]
  - Pneumonia [Unknown]
  - Malaise [Unknown]
  - Neutrophil count decreased [Unknown]
  - Rash [Unknown]
  - Disease progression [Unknown]
  - Anaemia [Unknown]
